FAERS Safety Report 22033422 (Version 6)
Quarter: 2024Q1

REPORT INFORMATION
  Report Type: Spontaneous
  Country: US (occurrence: US)
  Receive Date: 20230224
  Receipt Date: 20240129
  Transmission Date: 20240409
  Serious: Yes (Other)
  Sender: FDA-Public Use
  Company Number: US-PFIZER INC-PV202200106171

PATIENT
  Age: 75 Year
  Sex: Female

DRUGS (2)
  1. EUCRISA [Suspect]
     Active Substance: CRISABOROLE
     Indication: Dermatitis atopic
     Dosage: UNK, AS NEEDED (APPLY TO AFFECTED AREAS TWICE DAILY AS NEEDED; 60.0 G)
     Route: 061
  2. EUCRISA [Suspect]
     Active Substance: CRISABOROLE
     Dosage: UNK, AS NEEDED (APPLY TO AFFECTED AREAS TWICE DAILY AS NEEDED; 100 GRAM)
     Route: 061

REACTIONS (2)
  - Intervertebral disc protrusion [Unknown]
  - Nerve injury [Unknown]
